FAERS Safety Report 4646078-1 (Version None)
Quarter: 2005Q2

REPORT INFORMATION
  Report Type: 
  Country: None (occurrence: None)
  Receive Date: 20050427
  Receipt Date: 20040419
  Transmission Date: 20051028
  Serious: No
  Sender: FDA-Public Use
  Company Number: US-GLAXOSMITHKLINE-A0507568A

PATIENT
  Age: 48 Year
  Sex: Female

DRUGS (2)
  1. ZOFRAN [Suspect]
     Dosage: 4MG PER DAY
     Route: 042
     Dates: start: 20040305, end: 20040305
  2. MORPHINE [Concomitant]

REACTIONS (1)
  - PHLEBITIS [None]
